FAERS Safety Report 9039513 (Version 1)
Quarter: 2013Q1

REPORT INFORMATION
  Report Type: Spontaneous
  Country: US (occurrence: None)
  Receive Date: 20130123
  Receipt Date: 20130123
  Transmission Date: 20140127
  Serious: Yes (Death, Hospitalization)
  Sender: FDA-Public Use
  Company Number: None

PATIENT
  Age: 64 Year
  Sex: Male

DRUGS (6)
  1. LETAIRIS [Suspect]
     Indication: PULMONARY ARTERIAL HYPERTENSION
     Dosage: MAY BE 1 TO 2 DAYS
     Route: 048
  2. LETAIRIS [Concomitant]
  3. VIAGRA [Concomitant]
  4. SPORANOX [Concomitant]
  5. ALLOPURINOL [Concomitant]
  6. VICODIN [Concomitant]

REACTIONS (7)
  - Intestinal perforation [None]
  - Urinary tract infection [None]
  - Tracheitis [None]
  - Respiratory failure [None]
  - Pseudomonal sepsis [None]
  - Septic shock [None]
  - Sepsis [None]
